FAERS Safety Report 19065814 (Version 1)
Quarter: 2021Q1

REPORT INFORMATION
  Report Type: Spontaneous
  Country: GB (occurrence: GB)
  Receive Date: 20210327
  Receipt Date: 20210327
  Transmission Date: 20210420
  Serious: Yes (Hospitalization)
  Sender: FDA-Public Use
  Company Number: GB-NEBO-PC006691

PATIENT
  Age: 86 Year
  Sex: Male
  Weight: 74 kg

DRUGS (2)
  1. FINASTERID [Concomitant]
     Active Substance: FINASTERIDE
     Indication: ILL-DEFINED DISORDER
  2. MONOFER [Suspect]
     Active Substance: IRON ISOMALTOSIDE 1000
     Indication: ANAEMIA
     Route: 042
     Dates: start: 20210323, end: 20210323

REACTIONS (4)
  - Back pain [Recovered/Resolved]
  - Hypotension [Recovered/Resolved]
  - Depressed level of consciousness [Recovered/Resolved]
  - Incontinence [Recovered/Resolved]

NARRATIVE: CASE EVENT DATE: 20210323
